FAERS Safety Report 7408397-5 (Version None)
Quarter: 2011Q2

REPORT INFORMATION
  Report Type: 
  Country: None (occurrence: None)
  Receive Date: 20110401
  Receipt Date: 20110328
  Transmission Date: 20111010
  Serious: No
  Sender: FDA-Public Use
  Company Number: 2011-00140

PATIENT
  Age: 71 Year
  Sex: Female
  Weight: 58.9676 kg

DRUGS (2)
  1. PREDNISONE (AUG-2010) [Concomitant]
  2. ZICAM COLD REMEDY NASAL GEL [Suspect]
     Dosage: 1-4 DAYS
     Dates: start: 20100401, end: 20100401

REACTIONS (2)
  - ANOSMIA [None]
  - AGEUSIA [None]
